FAERS Safety Report 9371941 (Version 4)
Quarter: 2014Q3

REPORT INFORMATION
  Report Type: Spontaneous
  Country: NO (occurrence: None)
  Receive Date: 20130625
  Receipt Date: 20140805
  Transmission Date: 20150326
  Serious: Yes (Death)
  Sender: FDA-Public Use
  Company Number: SWE-LIT-2013001

PATIENT
  Sex: Male

DRUGS (4)
  1. SODIUM PHENYLBUTYRATE. [Concomitant]
     Active Substance: SODIUM PHENYLBUTYRATE
  2. SODIUM BENZOATE [Concomitant]
     Active Substance: SODIUM BENZOATE
  3. CARBAGLU [Suspect]
     Active Substance: CARGLUMIC ACID
     Indication: ORNITHINE TRANSCARBAMOYLASE DEFICIENCY
     Route: 048
  4. ARGININE CHLORIDE [Concomitant]

REACTIONS (14)
  - Hyperventilation [None]
  - Metabolic acidosis [None]
  - Drug ineffective [None]
  - Arrhythmia [None]
  - Cerebral disorder [None]
  - Poisoning [None]
  - Off label use [None]
  - Drug ineffective for unapproved indication [None]
  - Anxiety [None]
  - Muscle rigidity [None]
  - General physical health deterioration [None]
  - Irritability [None]
  - Respiratory disorder [None]
  - Respiratory alkalosis [None]
